FAERS Safety Report 9097966 (Version 2)
Quarter: 2013Q1

REPORT INFORMATION
  Report Type: Spontaneous
  Country: US (occurrence: US)
  Receive Date: 20130212
  Receipt Date: 20130327
  Transmission Date: 20140127
  Serious: No
  Sender: FDA-Public Use
  Company Number: US-PFIZER INC-2013054785

PATIENT
  Age: 50 Year
  Sex: Female
  Weight: 68.93 kg

DRUGS (2)
  1. LIPITOR [Suspect]
     Dosage: 10 MG, 1X/DAY
     Dates: start: 201301
  2. SYNTHROID [Concomitant]
     Indication: THYROID DISORDER
     Dosage: 100 UG, 1X/DAY

REACTIONS (9)
  - Palpitations [Not Recovered/Not Resolved]
  - Viral infection [Not Recovered/Not Resolved]
  - Chills [Not Recovered/Not Resolved]
  - Insomnia [Not Recovered/Not Resolved]
  - Sinus disorder [Not Recovered/Not Resolved]
  - Hypotension [Not Recovered/Not Resolved]
  - Asthenia [Not Recovered/Not Resolved]
  - Burning sensation [Not Recovered/Not Resolved]
  - Aura [Not Recovered/Not Resolved]
